FAERS Safety Report 4277165-8 (Version None)
Quarter: 2004Q1

REPORT INFORMATION
  Report Type: 
  Country: None (occurrence: None)
  Receive Date: 20040120
  Receipt Date: 20040105
  Transmission Date: 20041129
  Serious: Yes (Other)
  Sender: FDA-Public Use
  Company Number: ENTC2004-0002

PATIENT
  Age: 74 Year
  Sex: Male

DRUGS (4)
  1. STALEVO 100 [Suspect]
     Indication: PARKINSON'S DISEASE
     Dosage: 25MG/100MG/200MG FOUR TIMES DAILY
     Route: 048
     Dates: start: 20031001, end: 20040101
  2. ZOLOFT [Concomitant]
  3. FLOMAX [Concomitant]
  4. PROSCAR [Concomitant]

REACTIONS (1)
  - LEUKOCYTOCLASTIC VASCULITIS [None]
